FAERS Safety Report 16156826 (Version 3)
Quarter: 2019Q3

REPORT INFORMATION
  Report Type: Report from Study
  Country: US (occurrence: US)
  Receive Date: 20190404
  Receipt Date: 20190911
  Transmission Date: 20191004
  Serious: Yes (Other)
  Sender: FDA-Public Use
  Company Number: PHEH2019US014090

PATIENT
  Age: 34 Year
  Sex: Female

DRUGS (2)
  1. TYLENOL [Suspect]
     Active Substance: ACETAMINOPHEN
     Indication: HEADACHE
     Dosage: UNK
     Route: 065
  2. GILENYA [Suspect]
     Active Substance: FINGOLIMOD HYDROCHLORIDE
     Indication: MULTIPLE SCLEROSIS
     Dosage: 0.5 MG, QD
     Route: 048

REACTIONS (10)
  - Optic neuritis [Unknown]
  - Sneezing [Unknown]
  - Headache [Unknown]
  - Hepatic enzyme increased [Unknown]
  - Influenza [Unknown]
  - Migraine [Unknown]
  - Cough [Unknown]
  - Influenza like illness [Unknown]
  - Dyschromatopsia [Unknown]
  - Concussion [Unknown]

NARRATIVE: CASE EVENT DATE: 201901
